FAERS Safety Report 6551645-4 (Version None)
Quarter: 2010Q1

REPORT INFORMATION
  Report Type: 
  Country: None (occurrence: None)
  Receive Date: 20100120
  Receipt Date: 20100108
  Transmission Date: 20100710
  Serious: Yes (Hospitalization)
  Sender: FDA-Public Use
  Company Number: 230279J10USA

PATIENT
  Age: 52 Year
  Sex: Female

DRUGS (7)
  1. REBIF [Suspect]
     Indication: MULTIPLE SCLEROSIS
     Dosage: 44 MCG, 3 IN 1 WEEKS, SUBCUTANEOUS; 22 MCG, 3 IN1 WEEKS, SUBCUTANEOS
     Route: 058
     Dates: start: 20090713, end: 20091201
  2. REBIF [Suspect]
     Indication: MULTIPLE SCLEROSIS
     Dosage: 44 MCG, 3 IN 1 WEEKS, SUBCUTANEOUS; 22 MCG, 3 IN1 WEEKS, SUBCUTANEOS
     Route: 058
     Dates: start: 20100110
  3. NEURONTIN [Concomitant]
  4. DETROL [Concomitant]
  5. TOPAMAX [Concomitant]
  6. TOPAMAX [Concomitant]
  7. LYRICA [Concomitant]

REACTIONS (2)
  - EXOSTOSIS [None]
  - POSTOPERATIVE FEVER [None]
